FAERS Safety Report 22639208 (Version 1)
Quarter: 2023Q2

REPORT INFORMATION
  Report Type: Spontaneous
  Country: US (occurrence: None)
  Receive Date: 20230623
  Receipt Date: 20230623
  Transmission Date: 20230721
  Serious: No
  Sender: FDA-Public Use
  Company Number: None

PATIENT
  Age: 26 Year
  Sex: Female
  Weight: 81.9 kg

DRUGS (1)
  1. AMOXICILLIN [Suspect]
     Active Substance: AMOXICILLIN
     Indication: Pneumonia
     Dosage: FREQUENCY : 3 TIMES A DAY;?
     Route: 048

REACTIONS (10)
  - Headache [None]
  - Dizziness [None]
  - Dizziness [None]
  - Fatigue [None]
  - Mental impairment [None]
  - Speech disorder [None]
  - Limb discomfort [None]
  - Hot flush [None]
  - Burning sensation [None]
  - Hunger [None]

NARRATIVE: CASE EVENT DATE: 20230623
